FAERS Safety Report 4592502-2 (Version None)
Quarter: 2005Q1

REPORT INFORMATION
  Report Type: 
  Country: None (occurrence: None)
  Receive Date: 20050222
  Receipt Date: 20050207
  Transmission Date: 20050727
  Serious: Yes (Hospitalization)
  Sender: FDA-Public Use
  Company Number: VIS10188.2005

PATIENT
  Age: 46 Year
  Sex: Female

DRUGS (11)
  1. VISICOL [Suspect]
     Indication: COLONOSCOPY
     Dosage: 30 G ONCE PO
     Route: 048
  2. ROMAZICON [Suspect]
     Dosage: 0.2 MG ONCE IV
     Route: 042
  3. DEMEROL [Suspect]
     Indication: ANALGESIC EFFECT
  4. VERSED [Suspect]
     Indication: SEDATION
  5. BENADRYL [Suspect]
     Indication: URTICARIA
     Dosage: 25 MG ONCE IV
     Route: 042
  6. TRIMETHOPRIM [Concomitant]
  7. PAXIL CR [Concomitant]
  8. FOSAMAX [Concomitant]
  9. PREMARIN [Concomitant]
  10. BACLOFEN [Concomitant]
  11. ALLEGRA [Concomitant]

REACTIONS (17)
  - ARTERIOSPASM CORONARY [None]
  - BLOOD CALCIUM DECREASED [None]
  - BLOOD CREATINE PHOSPHOKINASE INCREASED [None]
  - BLOOD POTASSIUM DECREASED [None]
  - BLOOD PRESSURE SYSTOLIC DECREASED [None]
  - EJECTION FRACTION DECREASED [None]
  - HYPOKINESIA [None]
  - HYPOVOLAEMIA [None]
  - ISCHAEMIA [None]
  - LETHARGY [None]
  - MITRAL VALVE INCOMPETENCE [None]
  - MYOCARDIAL INFARCTION [None]
  - NAUSEA [None]
  - RASH [None]
  - TACHYCARDIA [None]
  - TROPONIN I INCREASED [None]
  - VENTRICULAR DYSFUNCTION [None]
